FAERS Safety Report 7456300-4 (Version None)
Quarter: 2011Q2

REPORT INFORMATION
  Report Type: 
  Country: None (occurrence: None)
  Receive Date: 20110503
  Receipt Date: 20110429
  Transmission Date: 20111010
  Serious: Yes (Other)
  Sender: FDA-Public Use
  Company Number: US-CEPHALON-2011002155

PATIENT
  Age: 27 Year
  Sex: Female

DRUGS (1)
  1. TREANDA [Suspect]
     Indication: HODGKIN'S DISEASE
     Route: 042

REACTIONS (3)
  - RASH [None]
  - DYSPNOEA [None]
  - ASPERGILLOSIS [None]
